FAERS Safety Report 5184876-9 (Version None)
Quarter: 2006Q4

REPORT INFORMATION
  Report Type: 
  Country: None (occurrence: None)
  Receive Date: 20061220
  Receipt Date: 20060503
  Transmission Date: 20070319
  Serious: No
  Sender: FDA-Public Use
  Company Number: CHPA2006US04180

PATIENT
  Age: 74 Year
  Sex: Female
  Weight: 45.5 kg

DRUGS (9)
  1. NICODERM CQ [Suspect]
     Indication: SMOKING CESSATION THERAPY
     Dosage: 21MG PER DAY
     Route: 062
  2. EQUATE NTS 21MG [Suspect]
     Indication: SMOKING CESSATION THERAPY
     Dosage: 21MG PER DAY
     Route: 062
     Dates: start: 20060301, end: 20060101
  3. PREMARIN [Concomitant]
  4. LESCOL [Concomitant]
  5. NORVASC [Concomitant]
  6. FAMOTIDINE [Concomitant]
  7. POLYSACCHARIDE-IRON COMPLEX [Concomitant]
  8. MIACALCIN [Concomitant]
  9. ADVAIR DISKUS 100/50 [Concomitant]

REACTIONS (5)
  - APPLICATION SITE ERYTHEMA [None]
  - APPLICATION SITE PAIN [None]
  - APPLICATION SITE PRURITUS [None]
  - APPLICATION SITE REACTION [None]
  - APPLICATION SITE SWELLING [None]
